FAERS Safety Report 14850464 (Version 1)
Quarter: 2018Q2

REPORT INFORMATION
  Report Type: Spontaneous
  Country: GB (occurrence: GB)
  Receive Date: 20180505
  Receipt Date: 20180505
  Transmission Date: 20180711
  Serious: Yes (Death, Hospitalization)
  Sender: FDA-Public Use
  Company Number: GB-AUROBINDO-AUR-APL-2018-023666

PATIENT
  Age: 65 Year
  Sex: Female
  Weight: 143 kg

DRUGS (2)
  1. ITRACONAZOLE. [Suspect]
     Active Substance: ITRACONAZOLE
     Indication: SEVERE ASTHMA WITH FUNGAL SENSITISATION
     Dosage: 400 MILLIGRAM, DAILY
     Route: 065
     Dates: start: 20170427, end: 201705
  2. SIMVASTATIN. [Suspect]
     Active Substance: SIMVASTATIN
     Indication: CEREBROVASCULAR ACCIDENT
     Dosage: ()
     Route: 065

REACTIONS (11)
  - Acute kidney injury [Fatal]
  - Hyperkalaemia [Unknown]
  - Chromaturia [Unknown]
  - Dyspnoea [Unknown]
  - Dysuria [Unknown]
  - Anuria [Unknown]
  - Contraindicated drug prescribed [Unknown]
  - Labelled drug-drug interaction medication error [Unknown]
  - Urosepsis [Unknown]
  - Dehydration [Unknown]
  - Urinary tract infection [Unknown]

NARRATIVE: CASE EVENT DATE: 20170522
